FAERS Safety Report 4786916-5 (Version None)
Quarter: 2005Q3

REPORT INFORMATION
  Report Type: 
  Country: None (occurrence: None)
  Receive Date: 20050930
  Receipt Date: 20050919
  Transmission Date: 20060218
  Serious: Yes (Hospitalization)
  Sender: FDA-Public Use
  Company Number: 2005PV002239

PATIENT
  Age: 75 Year
  Sex: Female
  Weight: 66.6788 kg

DRUGS (7)
  1. BYETTA [Suspect]
     Indication: DIABETES MELLITUS NON-INSULIN-DEPENDENT
     Dosage: SEE IMAGE
     Route: 058
     Dates: start: 20050701, end: 20050801
  2. BYETTA [Suspect]
     Indication: DIABETES MELLITUS NON-INSULIN-DEPENDENT
     Dosage: SEE IMAGE
     Route: 058
     Dates: start: 20050904
  3. AVANDAMET [Concomitant]
  4. TAZTIA [Concomitant]
  5. HUMALOG [Concomitant]
  6. PRILOSEC [Concomitant]
  7. NEXIUM [Concomitant]

REACTIONS (10)
  - DRUG DOSE OMISSION [None]
  - HERNIA [None]
  - INJECTION SITE HAEMORRHAGE [None]
  - INJECTION SITE PAIN [None]
  - INJECTION SITE PRURITUS [None]
  - INJECTION SITE REACTION [None]
  - INJECTION SITE SWELLING [None]
  - MALAISE [None]
  - SKIN DISORDER [None]
  - VOLVULUS OF BOWEL [None]
